FAERS Safety Report 25375261 (Version 1)
Quarter: 2025Q2

REPORT INFORMATION
  Report Type: Spontaneous
  Country: HR (occurrence: HR)
  Receive Date: 20250529
  Receipt Date: 20250529
  Transmission Date: 20250716
  Serious: Yes (Other)
  Sender: MYLAN
  Company Number: None

PATIENT
  Age: 16 Year
  Sex: Female
  Weight: 60 kg

DRUGS (16)
  1. ACETAMINOPHEN [Suspect]
     Active Substance: ACETAMINOPHEN
     Indication: Product used for unknown indication
     Dosage: 7 GRAM, QD
     Dates: start: 20250413, end: 20250413
  2. ACETAMINOPHEN [Suspect]
     Active Substance: ACETAMINOPHEN
     Dosage: 7 GRAM, QD
     Route: 048
     Dates: start: 20250413, end: 20250413
  3. ACETAMINOPHEN [Suspect]
     Active Substance: ACETAMINOPHEN
     Dosage: 7 GRAM, QD
     Route: 048
     Dates: start: 20250413, end: 20250413
  4. ACETAMINOPHEN [Suspect]
     Active Substance: ACETAMINOPHEN
     Dosage: 7 GRAM, QD
     Dates: start: 20250413, end: 20250413
  5. FEVARIN [Concomitant]
     Active Substance: FLUVOXAMINE MALEATE
  6. FEVARIN [Concomitant]
     Active Substance: FLUVOXAMINE MALEATE
     Route: 048
  7. FEVARIN [Concomitant]
     Active Substance: FLUVOXAMINE MALEATE
     Route: 048
  8. FEVARIN [Concomitant]
     Active Substance: FLUVOXAMINE MALEATE
  9. RIVOTRIL [Concomitant]
     Active Substance: CLONAZEPAM
  10. RIVOTRIL [Concomitant]
     Active Substance: CLONAZEPAM
     Route: 048
  11. RIVOTRIL [Concomitant]
     Active Substance: CLONAZEPAM
     Route: 048
  12. RIVOTRIL [Concomitant]
     Active Substance: CLONAZEPAM
  13. OLANZAPINE [Concomitant]
     Active Substance: OLANZAPINE
  14. OLANZAPINE [Concomitant]
     Active Substance: OLANZAPINE
     Route: 048
  15. OLANZAPINE [Concomitant]
     Active Substance: OLANZAPINE
     Route: 048
  16. OLANZAPINE [Concomitant]
     Active Substance: OLANZAPINE

REACTIONS (3)
  - Suicide attempt [Unknown]
  - No adverse event [Unknown]
  - Intentional overdose [Unknown]

NARRATIVE: CASE EVENT DATE: 20250413
